FAERS Safety Report 19487459 (Version 1)
Quarter: 2021Q3

REPORT INFORMATION
  Report Type: Report from Study
  Country: US (occurrence: US)
  Receive Date: 20210702
  Receipt Date: 20210702
  Transmission Date: 20211014
  Serious: Yes (Other)
  Sender: FDA-Public Use
  Company Number: US-SA-2021SA215064

PATIENT
  Age: 74 Year
  Sex: Male

DRUGS (5)
  1. MYCOPHENOLATE MOFETIL. [Concomitant]
     Active Substance: MYCOPHENOLATE MOFETIL
     Indication: DERMATITIS ATOPIC
  2. ACITRETIN. [Concomitant]
     Active Substance: ACITRETIN
     Indication: DERMATITIS ATOPIC
  3. DUPILUMAB [Suspect]
     Active Substance: DUPILUMAB
     Indication: DERMATITIS ATOPIC
     Dosage: UNK
  4. METHOTREXATE. [Concomitant]
     Active Substance: METHOTREXATE
     Indication: DERMATITIS ATOPIC
  5. SECUKINUMAB. [Concomitant]
     Active Substance: SECUKINUMAB
     Indication: DERMATITIS ATOPIC

REACTIONS (1)
  - Cutaneous T-cell lymphoma stage II [Unknown]
